FAERS Safety Report 7080319-9 (Version None)
Quarter: 2010Q4

REPORT INFORMATION
  Report Type: 
  Country: None (occurrence: None)
  Receive Date: 20101022
  Receipt Date: 20101007
  Transmission Date: 20110411
  Serious: Yes (Death, Other)
  Sender: FDA-Public Use
  Company Number: 011371

PATIENT

DRUGS (5)
  1. BUSULFEX [Suspect]
     Indication: STEM CELL TRANSPLANT
     Dosage: 3.2 MG/KG, DAILY DOSE, INTRAVENOUS
     Route: 042
  2. CYTARABINE [Concomitant]
  3. CYCLOPHOSPHAMIDE [Concomitant]
  4. ATG (ANTILYMPHOCYTE IMMUNOGLOBULIN (HORSE)) [Concomitant]
  5. CYCLOSPORINE [Concomitant]

REACTIONS (14)
  - ACUTE GRAFT VERSUS HOST DISEASE [None]
  - BACTERIAL INFECTION [None]
  - BRONCHOPULMONARY ASPERGILLOSIS [None]
  - CHRONIC GRAFT VERSUS HOST DISEASE [None]
  - CYSTITIS HAEMORRHAGIC [None]
  - CYTOMEGALOVIRUS GASTROENTERITIS [None]
  - CYTOMEGALOVIRUS VIRAEMIA [None]
  - DISEASE RECURRENCE [None]
  - FUNGAL INFECTION [None]
  - GASTROINTESTINAL INFECTION [None]
  - LUNG INFECTION [None]
  - MYELODYSPLASTIC SYNDROME [None]
  - PNEUMONIA CYTOMEGALOVIRAL [None]
  - URINARY TRACT INFECTION [None]
